FAERS Safety Report 25399969 (Version 5)
Quarter: 2025Q3

REPORT INFORMATION
  Report Type: Spontaneous
  Country: EU (occurrence: EU)
  Receive Date: 20250605
  Receipt Date: 20250908
  Transmission Date: 20251021
  Serious: Yes (Life-Threatening, Hospitalization, Other)
  Sender: NOVARTIS
  Company Number: EU-KRKA-PL2025K09541LIT

PATIENT
  Age: 7 Decade
  Sex: Female

DRUGS (27)
  1. IMATINIB [Suspect]
     Active Substance: IMATINIB
     Indication: Philadelphia positive acute lymphocytic leukaemia
     Route: 065
  2. IMATINIB [Suspect]
     Active Substance: IMATINIB
     Indication: B precursor type acute leukaemia
     Route: 065
  3. IMATINIB [Suspect]
     Active Substance: IMATINIB
     Route: 065
  4. IMATINIB [Suspect]
     Active Substance: IMATINIB
     Route: 065
  5. IMATINIB [Suspect]
     Active Substance: IMATINIB
     Route: 065
     Dates: start: 202107
  6. IMATINIB [Suspect]
     Active Substance: IMATINIB
     Route: 065
  7. DASATINIB [Suspect]
     Active Substance: DASATINIB
     Indication: Philadelphia positive acute lymphocytic leukaemia
     Dosage: 140 MG, QD
     Route: 065
     Dates: start: 202307, end: 2023
  8. DASATINIB [Suspect]
     Active Substance: DASATINIB
     Indication: B precursor type acute leukaemia
     Dosage: 100 MG, QD
     Route: 065
  9. DASATINIB [Suspect]
     Active Substance: DASATINIB
     Dosage: 100 MG, QD
     Route: 065
     Dates: start: 2023
  10. DEXAMETHASONE [Concomitant]
     Active Substance: DEXAMETHASONE
     Indication: Philadelphia positive acute lymphocytic leukaemia
     Route: 065
  11. DEXAMETHASONE [Concomitant]
     Active Substance: DEXAMETHASONE
     Indication: B precursor type acute leukaemia
     Dosage: 40 MG, QD
     Route: 065
     Dates: start: 202307
  12. DEXAMETHASONE [Concomitant]
     Active Substance: DEXAMETHASONE
     Route: 065
  13. PONATINIB [Concomitant]
     Active Substance: PONATINIB
     Indication: B precursor type acute leukaemia
     Dosage: 45 MG, QD
     Route: 065
     Dates: start: 202401
  14. METHOTREXATE [Concomitant]
     Active Substance: METHOTREXATE
     Indication: B precursor type acute leukaemia
     Route: 065
  15. METHOTREXATE [Concomitant]
     Active Substance: METHOTREXATE
     Route: 065
  16. METHOTREXATE [Concomitant]
     Active Substance: METHOTREXATE
     Route: 065
  17. CYTARABINE [Concomitant]
     Active Substance: CYTARABINE
     Indication: B precursor type acute leukaemia
     Route: 065
  18. CYTARABINE [Concomitant]
     Active Substance: CYTARABINE
     Route: 065
  19. CYTARABINE [Concomitant]
     Active Substance: CYTARABINE
     Route: 065
  20. VINCRISTINE [Concomitant]
     Active Substance: VINCRISTINE
     Indication: B precursor type acute leukaemia
     Route: 065
  21. RITUXIMAB [Concomitant]
     Active Substance: RITUXIMAB
     Indication: B precursor type acute leukaemia
     Route: 065
  22. RITUXIMAB [Concomitant]
     Active Substance: RITUXIMAB
     Route: 065
  23. RITUXIMAB [Concomitant]
     Active Substance: RITUXIMAB
     Route: 065
  24. RITUXIMAB [Concomitant]
     Active Substance: RITUXIMAB
     Route: 065
  25. RITUXIMAB [Concomitant]
     Active Substance: RITUXIMAB
     Route: 065
  26. PEG/L-ASPARAGINASE [Concomitant]
     Active Substance: PEGASPARGASE
     Indication: B precursor type acute leukaemia
     Route: 065
  27. PEG/L-ASPARAGINASE [Concomitant]
     Active Substance: PEGASPARGASE
     Route: 065

REACTIONS (3)
  - Drug resistance [Unknown]
  - Haematotoxicity [Unknown]
  - Gastrointestinal toxicity [Unknown]

NARRATIVE: CASE EVENT DATE: 20230101
